FAERS Safety Report 4661457-4 (Version None)
Quarter: 2005Q2

REPORT INFORMATION
  Report Type: 
  Country: None (occurrence: None)
  Receive Date: 20050513
  Receipt Date: 20050505
  Transmission Date: 20051028
  Serious: Yes (Other)
  Sender: FDA-Public Use
  Company Number: GB-GLAXOSMITHKLINE-B0380052A

PATIENT
  Age: 45 Year
  Sex: Female

DRUGS (2)
  1. ZYBAN [Suspect]
     Indication: SMOKING CESSATION THERAPY
     Dosage: 150MG PER DAY
     Route: 048
     Dates: start: 20050319, end: 20050415
  2. NIQUITIN CQ [Concomitant]
     Indication: SMOKING CESSATION THERAPY
     Route: 062
     Dates: start: 20050319

REACTIONS (4)
  - ANHEDONIA [None]
  - DEPRESSED MOOD [None]
  - INSOMNIA [None]
  - SUICIDAL IDEATION [None]
